FAERS Safety Report 8201960-3 (Version None)
Quarter: 2012Q1

REPORT INFORMATION
  Report Type: 
  Country: None (occurrence: None)
  Receive Date: 20120312
  Receipt Date: 20120307
  Transmission Date: 20120608
  Serious: Yes (Hospitalization)
  Sender: FDA-Public Use
  Company Number: PHHO2012IT003952

PATIENT
  Sex: Female
  Weight: 57 kg

DRUGS (2)
  1. FTY [Suspect]
     Indication: RELAPSING-REMITTING MULTIPLE SCLEROSIS
     Dosage: 0.5 MG, TID
     Route: 048
     Dates: start: 20111222, end: 20120301
  2. ACETAMINOPHEN [Suspect]
     Indication: PAIN
     Dosage: 1000 MG, BID
     Route: 048
     Dates: start: 20120228, end: 20120201

REACTIONS (1)
  - SYNCOPE [None]
